FAERS Safety Report 8672796 (Version 3)
Quarter: 2014Q2

REPORT INFORMATION
  Report Type: Spontaneous
  Country: FR (occurrence: FR)
  Receive Date: 20120719
  Receipt Date: 20140616
  Transmission Date: 20141212
  Serious: Yes (Hospitalization, Other)
  Sender: FDA-Public Use
  Company Number: FR-009507513-2012SP035712

PATIENT
  Age: 46 Year
  Sex: Male
  Weight: 79 kg

DRUGS (19)
  1. VICTRELIS [Suspect]
     Indication: HEPATITIS C
     Dosage: 800 MG, TID
     Dates: start: 20110614, end: 20120426
  2. VIRAFERONPEG [Suspect]
     Dosage: 80 ?G, QW
     Dates: start: 20110517, end: 20120614
  3. COPEGUS [Suspect]
     Dosage: 1000 MG, QD
     Route: 048
     Dates: start: 20110517, end: 20120614
  4. INSULIN [Concomitant]
     Indication: PRODUCT USED FOR UNKNOWN INDICATION
     Dosage: UNK, BID
     Dates: start: 20120614, end: 20120614
  5. MORPHINE HYDROCHLORIDE [Concomitant]
     Indication: PAIN
     Dosage: UNK
     Dates: start: 20120614
  6. ACUPAN [Concomitant]
     Indication: PAIN
     Dosage: UNK
     Dates: start: 20120614
  7. LOVENOX [Concomitant]
     Indication: THROMBOSIS PROPHYLAXIS
     Dosage: UNK
     Dates: start: 20120614
  8. MEDROL [Concomitant]
     Indication: TRANSPLANT REJECTION
     Dosage: 16 MG
     Dates: start: 20120614
  9. PROGRAF [Concomitant]
     Indication: TRANSPLANT REJECTION
     Dosage: 2 DF, UNK
     Dates: start: 20120614
  10. CELLCEPT [Concomitant]
     Indication: TRANSPLANT REJECTION
     Dosage: 1 DF, QD
  11. OGAST [Concomitant]
     Indication: GASTRITIS
     Dosage: 1 UNK, UNK
     Dates: start: 20120614
  12. TELAPREVIR [Concomitant]
  13. TRAMADOL HYDROCHLORIDE [Concomitant]
  14. ACETAMINOPHEN [Concomitant]
     Dosage: 1 G, QID
  15. LAROXYL [Concomitant]
     Dosage: 25 MG, BID
  16. SPASFON [Concomitant]
     Dosage: 80 MG, TID
  17. CONTRAMAL [Concomitant]
     Dosage: 50 MG, QID
  18. LYSANXIA [Concomitant]
     Dosage: 10 MG, BID
  19. REVOLADE [Concomitant]

REACTIONS (1)
  - Hepatocellular carcinoma [Recovered/Resolved]
